FAERS Safety Report 4825785-1 (Version None)
Quarter: 2005Q4

REPORT INFORMATION
  Report Type: 
  Country: None (occurrence: None)
  Receive Date: 20051111
  Receipt Date: 20051104
  Transmission Date: 20060501
  Serious: Yes (Hospitalization)
  Sender: FDA-Public Use
  Company Number: US-GLAXOSMITHKLINE-A0581062A

PATIENT
  Age: 74 Year
  Sex: Female
  Weight: 101 kg

DRUGS (2)
  1. TOPOTECAN [Suspect]
     Indication: UTERINE CANCER
     Dosage: 3.5MGM2 CYCLIC
     Route: 042
     Dates: start: 20050901
  2. TAXOTERE [Suspect]
     Indication: UTERINE CANCER
     Dosage: 24MGM2 CYCLIC
     Route: 042
     Dates: start: 20050901

REACTIONS (3)
  - DEEP VEIN THROMBOSIS [None]
  - OEDEMA PERIPHERAL [None]
  - RASH [None]
